FAERS Safety Report 12941141 (Version 1)
Quarter: 2016Q4

REPORT INFORMATION
  Report Type: Spontaneous
  Country: US (occurrence: US)
  Receive Date: 20161115
  Receipt Date: 20161115
  Transmission Date: 20170207
  Serious: Yes (Hospitalization)
  Sender: FDA-Public Use
  Company Number: US-ASTRAZENECA-2012SE57051

PATIENT
  Sex: Female
  Weight: 56.2 kg

DRUGS (10)
  1. SEROQUEL XR [Suspect]
     Active Substance: QUETIAPINE FUMARATE
     Indication: BIPOLAR DISORDER
     Route: 048
  2. SEROQUEL XR [Suspect]
     Active Substance: QUETIAPINE FUMARATE
     Indication: BIPOLAR DISORDER
     Route: 048
  3. OTC MELOTONIN [Concomitant]
     Indication: SLEEP DISORDER
  4. OXYCODONE [Concomitant]
     Active Substance: OXYCODONE
     Route: 048
  5. CLONOPIN [Concomitant]
     Active Substance: CLONAZEPAM
     Route: 048
  6. ABILIFY [Concomitant]
     Active Substance: ARIPIPRAZOLE
  7. TRAZODONE [Suspect]
     Active Substance: TRAZODONE HYDROCHLORIDE
     Indication: DEPRESSION
     Route: 048
  8. TRAZODONE [Suspect]
     Active Substance: TRAZODONE HYDROCHLORIDE
     Indication: DEPRESSION
     Route: 048
  9. AMBIIEN [Concomitant]
     Indication: SLEEP DISORDER
  10. SEROQUEL XR [Suspect]
     Active Substance: QUETIAPINE FUMARATE
     Indication: BIPOLAR DISORDER
     Route: 048
     Dates: start: 20161012

REACTIONS (11)
  - Arthralgia [Unknown]
  - Drug ineffective [Unknown]
  - Intervertebral disc protrusion [Unknown]
  - Abdominal discomfort [Unknown]
  - Intentional product use issue [Unknown]
  - Hypotension [Unknown]
  - Weight increased [Unknown]
  - Insomnia [Unknown]
  - Muscle spasms [Unknown]
  - Psychomotor hyperactivity [Unknown]
  - Intervertebral disc degeneration [Unknown]
